FAERS Safety Report 9870167 (Version 1)
Quarter: 2014Q1

REPORT INFORMATION
  Report Type: Spontaneous
  Country: US (occurrence: US)
  Receive Date: 20140205
  Receipt Date: 20140205
  Transmission Date: 20141002
  Serious: Yes (Hospitalization)
  Sender: FDA-Public Use
  Company Number: US-JNJFOC-20140200912

PATIENT
  Age: 76 Year
  Sex: Female

DRUGS (9)
  1. XARELTO [Suspect]
     Indication: CEREBROVASCULAR ACCIDENT PROPHYLAXIS
     Route: 048
     Dates: start: 201302
  2. XARELTO [Suspect]
     Indication: ATRIAL FIBRILLATION
     Route: 048
     Dates: start: 201302
  3. LIPITOR [Concomitant]
     Indication: BLOOD CHOLESTEROL INCREASED
     Route: 065
  4. TRILIPIX [Concomitant]
     Indication: BLOOD CHOLESTEROL INCREASED
     Route: 065
  5. GABAPENTIN [Concomitant]
     Route: 065
  6. LOPRESSOR [Concomitant]
     Route: 065
  7. LEVOXYL [Concomitant]
     Indication: THYROID DISORDER
     Route: 065
  8. LISINOPRIL [Concomitant]
     Route: 065
  9. METFORMIN [Concomitant]
     Indication: DIABETES MELLITUS
     Route: 065

REACTIONS (2)
  - Pulmonary embolism [Unknown]
  - Wrong technique in drug usage process [Unknown]
